FAERS Safety Report 12066853 (Version 1)
Quarter: 2016Q1

REPORT INFORMATION
  Report Type: Spontaneous
  Country: US (occurrence: US)
  Receive Date: 20160211
  Receipt Date: 20160211
  Transmission Date: 20160526
  Serious: Yes (Other)
  Sender: FDA-Public Use
  Company Number: US-BAYER-2015-483290

PATIENT
  Age: 73 Year
  Sex: Male

DRUGS (7)
  1. XARELTO [Interacting]
     Active Substance: RIVAROXABAN
     Indication: THROMBOSIS
     Dosage: UNK
     Route: 048
     Dates: start: 20140319, end: 20141204
  2. XARELTO [Interacting]
     Active Substance: RIVAROXABAN
     Indication: EMBOLISM VENOUS
  3. XARELTO [Interacting]
     Active Substance: RIVAROXABAN
     Indication: PULMONARY EMBOLISM
  4. ACETYLSALICYLIC ACID (} 100 MG) [Suspect]
     Active Substance: ASPIRIN
     Indication: PRODUCT USED FOR UNKNOWN INDICATION
     Dosage: 325 MG, UNK
     Route: 048
     Dates: end: 20141209
  5. SIMVASTATIN. [Concomitant]
     Active Substance: SIMVASTATIN
     Indication: PRODUCT USED FOR UNKNOWN INDICATION
     Dosage: UNK
     Route: 048
  6. XARELTO [Interacting]
     Active Substance: RIVAROXABAN
     Indication: DEEP VEIN THROMBOSIS
  7. AMLODIPINE BESYLATE W/BENAZEPRIL HYDROCHLOR. [Concomitant]
     Active Substance: AMLODIPINE BESYLATE\BENAZEPRIL HYDROCHLORIDE
     Indication: PRODUCT USED FOR UNKNOWN INDICATION
     Dosage: UNK
     Route: 048

REACTIONS (1)
  - Rectal haemorrhage [Recovered/Resolved]

NARRATIVE: CASE EVENT DATE: 20141204
